FAERS Safety Report 9010909 (Version 1)
Quarter: 2013Q1

REPORT INFORMATION
  Report Type: Spontaneous
  Country: IT (occurrence: IT)
  Receive Date: 20130109
  Receipt Date: 20130109
  Transmission Date: 20140127
  Serious: Yes (Other)
  Sender: FDA-Public Use
  Company Number: IT-JNJFOC-20130101890

PATIENT
  Age: 29 Year
  Sex: Male

DRUGS (4)
  1. RISPERDAL [Suspect]
     Indication: SELF INJURIOUS BEHAVIOUR
     Route: 048
     Dates: start: 20130103, end: 20130103
  2. RIVOTRIL [Suspect]
     Indication: SELF INJURIOUS BEHAVIOUR
     Route: 048
  3. DEPAKIN CHRONO [Suspect]
     Indication: SELF INJURIOUS BEHAVIOUR
     Dosage: 12 CRP
     Route: 065
  4. METFORMINA [Suspect]
     Indication: SELF INJURIOUS BEHAVIOUR
     Dosage: 7 CRP
     Route: 065

REACTIONS (2)
  - Self injurious behaviour [Unknown]
  - Intentional overdose [Unknown]
